FAERS Safety Report 19804529 (Version 1)
Quarter: 2021Q3

REPORT INFORMATION
  Report Type: Report from Study
  Country: TH (occurrence: TH)
  Receive Date: 20210908
  Receipt Date: 20210908
  Transmission Date: 20211014
  Serious: Yes (Death, Hospitalization)
  Sender: FDA-Public Use
  Company Number: TH-ASTRAZENECA-2020SE39537

PATIENT
  Age: 1142 Month
  Sex: Female

DRUGS (1)
  1. IRESSA [Suspect]
     Active Substance: GEFITINIB
     Indication: LUNG NEOPLASM MALIGNANT
     Route: 048
     Dates: start: 20180804

REACTIONS (6)
  - Pneumonia [Fatal]
  - Fatigue [Fatal]
  - Tracheomalacia [Fatal]
  - Sepsis [Fatal]
  - Myocardial necrosis marker increased [Unknown]
  - Productive cough [Fatal]

NARRATIVE: CASE EVENT DATE: 202003
